FAERS Safety Report 25850443 (Version 1)
Quarter: 2025Q3

REPORT INFORMATION
  Report Type: Spontaneous
  Country: EU (occurrence: EU)
  Receive Date: 20250926
  Receipt Date: 20250926
  Transmission Date: 20251021
  Serious: Yes (Hospitalization, Other)
  Sender: ROCHE
  Company Number: EU-ROCHE-10000393055

PATIENT
  Sex: Female

DRUGS (1)
  1. OCREVUS [Suspect]
     Active Substance: OCRELIZUMAB
     Indication: Product used for unknown indication
     Route: 065
     Dates: start: 2019

REACTIONS (5)
  - Mouth ulceration [Unknown]
  - Pyrexia [Unknown]
  - Pancytopenia [Unknown]
  - Neutropenia [Unknown]
  - Tongue ulceration [Unknown]
